FAERS Safety Report 7485008-4 (Version None)
Quarter: 2011Q2

REPORT INFORMATION
  Report Type: 
  Country: None (occurrence: None)
  Receive Date: 20110517
  Receipt Date: 20110505
  Transmission Date: 20111010
  Serious: Yes (Hospitalization)
  Sender: FDA-Public Use
  Company Number: CH-ROCHE-775497

PATIENT
  Sex: Female
  Weight: 69 kg

DRUGS (2)
  1. HERCEPTIN [Suspect]
     Dosage: DATE OF LAST DOSE PRIOR TO SAE: 26 APRIL 2011
     Route: 042
     Dates: start: 20100726
  2. LISINOPRIL [Concomitant]
     Dosage: DOSE: 1-0-1/2
     Dates: start: 20100616

REACTIONS (1)
  - PERIPHERAL ARTERIAL OCCLUSIVE DISEASE [None]
